FAERS Safety Report 25978526 (Version 2)
Quarter: 2025Q4

REPORT INFORMATION
  Report Type: Spontaneous
  Country: JP (occurrence: JP)
  Receive Date: 20251030
  Receipt Date: 20251031
  Transmission Date: 20260118
  Serious: Yes (Other)
  Sender: LEO PHARM
  Company Number: JP-LEO Pharma-383685

PATIENT
  Sex: Male

DRUGS (1)
  1. ADBRY [Suspect]
     Active Substance: TRALOKINUMAB-LDRM
     Indication: Product used for unknown indication
     Dates: start: 20251010

REACTIONS (2)
  - Ophthalmic herpes simplex [Unknown]
  - COVID-19 [Unknown]

NARRATIVE: CASE EVENT DATE: 20251001
